FAERS Safety Report 6241652-3 (Version None)
Quarter: 2009Q2

REPORT INFORMATION
  Report Type: 
  Country: None (occurrence: None)
  Receive Date: 20090623
  Receipt Date: 20051129
  Transmission Date: 20091009
  Serious: Yes (Hospitalization)
  Sender: FDA-Public Use
  Company Number: AT-ROCHE-627826

PATIENT
  Sex: Female
  Weight: 46 kg

DRUGS (33)
  1. DACLIZUMAB [Suspect]
     Dosage: FIRST DOSE 24 HOURS PRE-TRANSPLANT (AS PER PROTOCOL)
     Route: 042
  2. DACLIZUMAB [Suspect]
     Route: 042
  3. MYCOPHENOLATE MOFETIL [Suspect]
     Dosage: DRUG: MYCOPHENOLATMOFETIL
     Route: 048
     Dates: start: 20030406
  4. MYCOPHENOLATE MOFETIL [Suspect]
     Route: 048
     Dates: start: 20031015
  5. MYCOPHENOLATE MOFETIL [Suspect]
     Route: 048
     Dates: start: 20031117
  6. MYCOPHENOLATE MOFETIL [Suspect]
     Route: 048
     Dates: start: 20040209
  7. MYCOPHENOLATE MOFETIL [Suspect]
     Route: 048
     Dates: start: 20040623
  8. MYCOPHENOLATE MOFETIL [Suspect]
     Route: 048
     Dates: start: 20040816, end: 20041104
  9. MYCOPHENOLATE MOFETIL [Suspect]
     Route: 048
     Dates: start: 20060502
  10. CYCLOSPORINE [Suspect]
     Dosage: DRUG: CYCLOSPORIN
     Route: 048
     Dates: start: 20030406
  11. CYCLOSPORINE [Suspect]
     Route: 048
     Dates: start: 20030414
  12. CYCLOSPORINE [Suspect]
     Route: 048
     Dates: start: 20030509
  13. CYCLOSPORINE [Suspect]
     Route: 048
     Dates: start: 20030516
  14. CYCLOSPORINE [Suspect]
     Route: 048
     Dates: start: 20030524
  15. CYCLOSPORINE [Suspect]
     Route: 048
     Dates: start: 20031117
  16. CYCLOSPORINE [Suspect]
     Route: 048
     Dates: start: 20040826
  17. CYCLOSPORINE [Suspect]
     Dosage: DRUG: CYCLOSPORIN
     Route: 048
     Dates: start: 20050705
  18. CYCLOSPORINE [Suspect]
     Route: 048
     Dates: start: 20051004
  19. METHYLPREDNISOLONE [Suspect]
     Dosage: DRUG: METHYLPREDNISOLON
     Route: 042
     Dates: start: 20030406
  20. METHYLPREDNISOLONE [Suspect]
     Route: 042
     Dates: start: 20030406
  21. METHYLPREDNISOLONE [Suspect]
     Route: 042
     Dates: start: 20030407
  22. PREDNISOLONE [Suspect]
     Route: 048
     Dates: start: 20030408
  23. PREDNISOLONE [Suspect]
     Route: 048
     Dates: start: 20030419
  24. PREDNISOLONE [Suspect]
     Route: 048
     Dates: start: 20030505
  25. PREDNISOLONE [Suspect]
     Route: 048
     Dates: start: 20030522
  26. PREDNISOLONE [Suspect]
     Route: 048
     Dates: start: 20030819, end: 20031007
  27. CIPROFLOXACIN [Concomitant]
     Route: 048
     Dates: start: 20030424, end: 20030430
  28. SIMVASTATIN [Concomitant]
     Route: 048
     Dates: start: 20030418, end: 20030424
  29. SIMVASTATIN [Concomitant]
     Route: 048
     Dates: start: 20041108, end: 20051121
  30. VALGANCICLOVIR HCL [Concomitant]
     Route: 048
     Dates: start: 20030407, end: 20030424
  31. VALGANCICLOVIR HCL [Concomitant]
     Route: 048
     Dates: start: 20040623
  32. VALGANCICLOVIR HCL [Concomitant]
     Route: 048
     Dates: start: 20040726
  33. VALGANCICLOVIR HCL [Concomitant]
     Route: 048
     Dates: start: 20041108, end: 20050509

REACTIONS (2)
  - BACTERIAL INFECTION [None]
  - SEPSIS [None]
